FAERS Safety Report 4826364-2 (Version None)
Quarter: 2005Q4

REPORT INFORMATION
  Report Type: 
  Country: None (occurrence: None)
  Receive Date: 20051111
  Receipt Date: 20051103
  Transmission Date: 20060501
  Serious: Yes (Hospitalization)
  Sender: FDA-Public Use
  Company Number: PHFR2005GB03627

PATIENT
  Age: 82 Year
  Sex: Female

DRUGS (4)
  1. DICLOFENAC [Suspect]
     Indication: OSTEOARTHRITIS
     Dosage: 50 MG, TID
     Route: 048
     Dates: end: 20051001
  2. ACETYLSALICYLIC ACID (NGX) [Suspect]
     Indication: PROPHYLAXIS
     Dosage: 75 MG, QD
     Route: 048
     Dates: end: 20051005
  3. ATENOLOL [Concomitant]
     Indication: HYPERTENSION
     Dosage: 150MG/OM
     Route: 048
  4. DALTEPARIN [Concomitant]
     Indication: PROPHYLAXIS
     Dosage: 2500 UKN, QD
     Route: 065
     Dates: start: 20051005

REACTIONS (8)
  - ABDOMINAL PAIN [None]
  - BLOOD ALBUMIN DECREASED [None]
  - BLOOD BILIRUBIN INCREASED [None]
  - BLOOD SODIUM DECREASED [None]
  - BLOOD UREA DECREASED [None]
  - GASTRIC ULCER PERFORATION [None]
  - NAUSEA [None]
  - PERITONITIS [None]
